FAERS Safety Report 5299303-0 (Version None)
Quarter: 2007Q2

REPORT INFORMATION
  Report Type: 
  Country: None (occurrence: None)
  Receive Date: 20070403
  Receipt Date: 20070403
  Transmission Date: 20071010
  Serious: Yes (Other)
  Sender: FDA-Public Use
  Company Number: None

PATIENT
  Age: 15 Year
  Sex: Female
  Weight: 83.9154 kg

DRUGS (1)
  1. CERTAIN DRI ALUMINUM CHLORIDE 12 % DSE HEALTHCARE SOLUTIONS, LLC [Suspect]
     Indication: HYPERHIDROSIS
     Dosage: ROLL-ON APPLY AT BEDTIME CUTANEOUS
     Route: 003
     Dates: start: 20061120, end: 20070220

REACTIONS (5)
  - DYSURIA [None]
  - MICTURITION URGENCY [None]
  - POLLAKIURIA [None]
  - RENAL PAIN [None]
  - SKIN DISORDER [None]
